FAERS Safety Report 8207750-X (Version None)
Quarter: 2012Q1

REPORT INFORMATION
  Report Type: 
  Country: None (occurrence: None)
  Receive Date: 20120313
  Receipt Date: 20120313
  Transmission Date: 20120608
  Serious: No
  Sender: FDA-Public Use
  Company Number: None

PATIENT
  Age: 68 Year
  Sex: Male
  Weight: 68.6 kg

DRUGS (2)
  1. INSULIN [Suspect]
     Indication: PAIN
     Dosage: 30 IU AM SQ
     Route: 058
     Dates: start: 20111022, end: 20111022
  2. INSULIN [Suspect]
     Dosage: ML

REACTIONS (1)
  - HYPOGLYCAEMIA [None]
